FAERS Safety Report 6826943-7 (Version None)
Quarter: 2010Q3

REPORT INFORMATION
  Report Type: 
  Country: None (occurrence: None)
  Receive Date: 20100709
  Receipt Date: 20100630
  Transmission Date: 20110219
  Serious: Yes (Hospitalization)
  Sender: FDA-Public Use
  Company Number: JP-ROCHE-713817

PATIENT
  Sex: Male

DRUGS (12)
  1. PANALDINE [Suspect]
     Indication: ANGINA PECTORIS
     Dosage: DOSE FORM: PERORAL AGENT
     Route: 048
  2. ERLOTINIB [Suspect]
     Indication: LUNG ADENOCARCINOMA
     Route: 048
     Dates: start: 20090107, end: 20090719
  3. ERLOTINIB [Suspect]
     Route: 048
     Dates: start: 20090806, end: 20100519
  4. ASPIRIN [Suspect]
     Indication: ANGINA PECTORIS
     Route: 048
  5. NORVASC [Concomitant]
     Route: 048
  6. SIGMART [Concomitant]
     Route: 048
  7. BASEN [Concomitant]
     Route: 048
  8. PANTOSIN [Concomitant]
     Route: 048
  9. LOXONIN [Concomitant]
     Dosage: DOSE FORM: PERORAL AGENT
     Route: 048
  10. SELBEX [Concomitant]
     Dosage: DOSE FORM: PERORAL AGENT
     Route: 048
  11. OXINORM [Concomitant]
     Dosage: SINGLE USE DRUG: OXINORM(OXYCODONE HYDROCHLORIDE)
     Route: 048
     Dates: start: 20090201
  12. DUROTEP [Concomitant]
     Dosage: DOSE FORM: TAPE
     Route: 062
     Dates: start: 20100312

REACTIONS (4)
  - ANAEMIA [None]
  - PLATELET COUNT DECREASED [None]
  - SEBORRHOEIC DERMATITIS [None]
  - TOXIC SKIN ERUPTION [None]
